FAERS Safety Report 10609946 (Version 1)
Quarter: 2014Q4

REPORT INFORMATION
  Report Type: Spontaneous
  Country: ES (occurrence: ES)
  Receive Date: 20141126
  Receipt Date: 20141126
  Transmission Date: 20150529
  Serious: Yes (Other)
  Sender: FDA-Public Use
  Company Number: ES-PFIZER INC-2014322958

PATIENT
  Age: 14 Year
  Sex: Female

DRUGS (5)
  1. TERBASMIN [Concomitant]
     Active Substance: TERBUTALINE SULFATE
     Indication: ASTHMATIC CRISIS
     Dosage: UNK, AS NEEDED
  2. SINGULAIR [Concomitant]
     Active Substance: MONTELUKAST SODIUM
     Indication: ASTHMA
     Dosage: 1 DF, DAILY
     Route: 055
  3. SEREVENT [Concomitant]
     Active Substance: SALMETEROL XINAFOATE
     Indication: ASTHMA
     Dosage: 1 DF, 2X/DAY
     Route: 055
  4. GENOTONORM [Suspect]
     Active Substance: SOMATROPIN
     Indication: BLOOD GROWTH HORMONE DECREASED
     Dosage: 0.8 UNK
     Dates: start: 20100202
  5. SALBUTAMOL [Concomitant]
     Active Substance: ALBUTEROL
     Indication: ASTHMATIC CRISIS
     Dosage: UNK, AS NEEDED

REACTIONS (4)
  - Wrong technique in drug usage process [Unknown]
  - Cough [Recovering/Resolving]
  - Asthmatic crisis [Recovered/Resolved]
  - Nasopharyngitis [Recovering/Resolving]

NARRATIVE: CASE EVENT DATE: 201410
